FAERS Safety Report 15435892 (Version 1)
Quarter: 2018Q3

REPORT INFORMATION
  Report Type: Spontaneous
  Country: GB (occurrence: GB)
  Receive Date: 20180927
  Receipt Date: 20180927
  Transmission Date: 20181010
  Serious: Yes (Hospitalization)
  Sender: FDA-Public Use
  Company Number: GB-SA-2018SA263050

PATIENT
  Age: 81 Year
  Sex: Female

DRUGS (11)
  1. ADCAL D3 [Concomitant]
     Active Substance: CALCIUM CARBONATE\CHOLECALCIFEROL
  2. RISEDRONATE SODIUM. [Concomitant]
     Active Substance: RISEDRONATE SODIUM
  3. OMEPRAZOLE. [Suspect]
     Active Substance: OMEPRAZOLE
     Dosage: 20 MG, UNK
     Route: 065
  4. HYLO TEAR [Concomitant]
     Route: 047
  5. LEVOTHYROXINE SODIUM. [Concomitant]
     Active Substance: LEVOTHYROXINE SODIUM
  6. RAMIPRIL. [Concomitant]
     Active Substance: RAMIPRIL
  7. CARBOMER [Concomitant]
     Active Substance: CARBOMER
     Route: 047
  8. INDAPAMIDE. [Suspect]
     Active Substance: INDAPAMIDE
     Dosage: 2.5 MG, UNK
     Route: 048
     Dates: start: 20180807, end: 20180826
  9. ATORVASTATIN [Concomitant]
     Active Substance: ATORVASTATIN
  10. DOXAZOSIN [Concomitant]
     Active Substance: DOXAZOSIN\DOXAZOSIN MESYLATE
  11. FUROSEMIDE. [Concomitant]
     Active Substance: FUROSEMIDE

REACTIONS (4)
  - Hypomagnesaemia [Recovered/Resolved]
  - Fall [Unknown]
  - Hyponatraemia [Recovering/Resolving]
  - Confusional state [Recovered/Resolved]

NARRATIVE: CASE EVENT DATE: 20180826
